FAERS Safety Report 15491718 (Version 1)
Quarter: 2018Q4

REPORT INFORMATION
  Report Type: Report from Study
  Country: CA (occurrence: CA)
  Receive Date: 20181012
  Receipt Date: 20181012
  Transmission Date: 20190205
  Serious: Yes (Hospitalization, Other)
  Sender: FDA-Public Use
  Company Number: CA-UCBSA-2018032270

PATIENT
  Sex: Female

DRUGS (3)
  1. MTX [Concomitant]
     Active Substance: METHOTREXATE SODIUM
     Indication: PRODUCT USED FOR UNKNOWN INDICATION
  2. CEFUROXIME. [Concomitant]
     Active Substance: CEFUROXIME
     Indication: KIDNEY INFECTION
     Dosage: 500 MG, 2X/DAY (BID)
  3. CERTOLIZUMAB PEGOL RA [Suspect]
     Active Substance: CERTOLIZUMAB PEGOL
     Indication: RHEUMATOID ARTHRITIS
     Dosage: 200 MG, EV 2 WEEKS(QOW)
     Route: 058

REACTIONS (6)
  - Nasopharyngitis [Unknown]
  - Kidney infection [Unknown]
  - Pregnancy [Unknown]
  - Cough [Unknown]
  - Rheumatoid arthritis [Unknown]
  - Oropharyngeal pain [Unknown]

NARRATIVE: CASE EVENT DATE: 2018
